FAERS Safety Report 12529640 (Version 2)
Quarter: 2016Q3

REPORT INFORMATION
  Report Type: Spontaneous
  Country: PL (occurrence: PL)
  Receive Date: 20160706
  Receipt Date: 20160817
  Transmission Date: 20161109
  Serious: Yes (Other)
  Sender: FDA-Public Use
  Company Number: PL-AMGEN-POLSP2016084913

PATIENT
  Age: 56 Year
  Sex: Male

DRUGS (5)
  1. MOVALIS [Concomitant]
     Active Substance: MELOXICAM
     Dosage: 15 MG, 1 TAB/NIGHT
  2. ENBREL [Suspect]
     Active Substance: ETANERCEPT
     Indication: RHEUMATOID ARTHRITIS
     Dosage: 1X50 MG, WEEKLY
     Route: 058
     Dates: start: 20160517, end: 20160607
  3. PHENAZOLINUM [Concomitant]
     Dosage: 1 AMP X 3 DAYS
  4. FEXOFENADINE [Concomitant]
     Active Substance: FEXOFENADINE\FEXOFENADINE HYDROCHLORIDE
     Dosage: TELFAST 180, 1 TABL X DAILY
  5. METEX [Concomitant]
     Active Substance: METFORMIN HYDROCHLORIDE
     Dosage: 25 MG, WEEKLY

REACTIONS (8)
  - Rash pruritic [Unknown]
  - Rash erythematous [Unknown]
  - Hypersensitivity [Recovered/Resolved]
  - Rash generalised [Unknown]
  - Injection site erythema [Unknown]
  - Feeling abnormal [Unknown]
  - Blister [Unknown]
  - Skin lesion [Unknown]

NARRATIVE: CASE EVENT DATE: 20160524
